FAERS Safety Report 8485528 (Version 3)
Quarter: 2013Q4

REPORT INFORMATION
  Report Type: Report from Study
  Country: AR (occurrence: AR)
  Receive Date: 20120330
  Receipt Date: 20131115
  Transmission Date: 20140711
  Serious: Yes (Hospitalization, Other)
  Sender: FDA-Public Use
  Company Number: AR-ROCHE-1053490

PATIENT
  Age: 72 Year
  Sex: Female

DRUGS (3)
  1. RANIBIZUMAB [Suspect]
     Indication: DIABETIC RETINOPATHY
     Route: 050
     Dates: start: 201102
  2. RANIBIZUMAB [Suspect]
     Indication: CATARACT
     Route: 050
     Dates: start: 2012, end: 2012
  3. RANIBIZUMAB [Suspect]
     Indication: DIABETES MELLITUS

REACTIONS (8)
  - Cerebrovascular accident [Not Recovered/Not Resolved]
  - Retinal vascular thrombosis [Not Recovered/Not Resolved]
  - Blood pressure increased [Not Recovered/Not Resolved]
  - Fall [Not Recovered/Not Resolved]
  - Pain in extremity [Not Recovered/Not Resolved]
  - Eye discharge [Not Recovered/Not Resolved]
  - Visual acuity reduced [Not Recovered/Not Resolved]
  - Visual impairment [Not Recovered/Not Resolved]
